FAERS Safety Report 17835435 (Version 1)
Quarter: 2020Q2

REPORT INFORMATION
  Report Type: Spontaneous
  Country: AR (occurrence: AR)
  Receive Date: 20200528
  Receipt Date: 20200528
  Transmission Date: 20200714
  Serious: Yes (Other)
  Sender: FDA-Public Use
  Company Number: AR-PFIZER INC-2020209079

PATIENT
  Age: 58 Year
  Sex: Female

DRUGS (1)
  1. IBRANCE [Suspect]
     Active Substance: PALBOCICLIB
     Indication: BREAST CANCER METASTATIC
     Dosage: 125 MG, DAILY SCHEME 3X1
     Dates: start: 20191203

REACTIONS (10)
  - Colitis [Unknown]
  - Neoplasm progression [Unknown]
  - Skin mass [Unknown]
  - Malnutrition [Unknown]
  - Malaise [Unknown]
  - Vomiting [Unknown]
  - Drug intolerance [Unknown]
  - Sleep disorder [Unknown]
  - Hepatic failure [Unknown]
  - Pain [Unknown]

NARRATIVE: CASE EVENT DATE: 202002
